FAERS Safety Report 8781148 (Version 7)
Quarter: 2013Q1

REPORT INFORMATION
  Report Type: Report from Study
  Country: JP (occurrence: JP)
  Receive Date: 20120913
  Receipt Date: 20130221
  Transmission Date: 20140127
  Serious: Yes (Death, Life-Threatening, Disabling)
  Sender: FDA-Public Use
  Company Number: JP-009507513-1209JPN003087

PATIENT
  Age: 61 Year
  Sex: Female
  Weight: 71 kg

DRUGS (9)
  1. PEGINTRON [Suspect]
     Indication: CHRONIC HEPATITIS C
     Dosage: 1.5 MICROGRAM PER KILOGRAM, QW
     Route: 058
     Dates: start: 20120628, end: 20120830
  2. REBETOL [Suspect]
     Indication: CHRONIC HEPATITIS C
     Dosage: 800 MG, QD
     Route: 048
     Dates: start: 20120628, end: 20120830
  3. TELAVIC [Suspect]
     Indication: CHRONIC HEPATITIS C
     Dosage: 2250 MG, QD
     Route: 048
     Dates: start: 20120628, end: 20120704
  4. TELAVIC [Suspect]
     Dosage: 1500, MG, QD
     Route: 048
     Dates: start: 20120704, end: 20120830
  5. GASMOTIN [Concomitant]
     Indication: DECREASED APPETITE
     Dosage: 15 MG, QD
     Route: 048
     Dates: start: 20120710, end: 20120831
  6. PROMAC (POLAPREZINC) [Concomitant]
     Indication: PROPHYLAXIS
     Dosage: 150 MG, QD
     Route: 048
     Dates: start: 20120710, end: 20120831
  7. BISULASE [Concomitant]
     Indication: PROPHYLAXIS
     Dosage: 30 MG, QD
     Route: 048
     Dates: start: 20120710, end: 20120831
  8. FURSULTIAMINE [Concomitant]
     Dosage: 75 MG, UNK
     Route: 048
     Dates: start: 20120821, end: 20120902
  9. PREDNISOLONE [Concomitant]
     Indication: PRURITUS
     Dosage: 10 MG, QD
     Route: 048
     Dates: start: 20120901, end: 20120902

REACTIONS (1)
  - Pyelonephritis [Fatal]
